FAERS Safety Report 9522668 (Version 1)
Quarter: 2013Q1

REPORT INFORMATION
  Report Type: Spontaneous
  Country: US (occurrence: None)
  Receive Date: 20130305
  Receipt Date: 20130305
  Transmission Date: 20140127
  Serious: Yes (Disabling)
  Sender: FDA-Public Use
  Company Number: 163-21880-12032286

PATIENT
  Age: 58 Year
  Sex: Male

DRUGS (10)
  1. REVLIMID [Suspect]
     Indication: PLASMA CELL MYELOMA
     Dosage: 10 MG,  DAILY X 21 DAYS ON 7 DAYS OFF
     Route: 048
     Dates: start: 201107, end: 20120318
  2. HYDROCODONE/APAP (VICODIN) (UNKNOWN) [Concomitant]
  3. MORPHINE (MORPHINE) (UNKNOWN) (MORPHINE) [Concomitant]
  4. FLOMAX (TAMSULOSIN HYDROCHLORIDE) (UNKNOWN) [Concomitant]
  5. AVODART (DUTASTERIDE) (UNKNOWN) [Concomitant]
  6. DEXAMETHASONE (DEXAMETHASONE) (UNKNOWN) [Concomitant]
  7. ASPIRIN (ACETYLSALICYLIC ACID) (UNKNOWN) (ACETYLSALICYLIC ACID) [Concomitant]
  8. MULTIVITAMIN (MULTIVITAMINS) (UNKNOWN) [Concomitant]
  9. OMEPRAZOLE (OMEPRAZOLE) (UNKNOWN) [Concomitant]
  10. CALCIUM (CALCIUM) (UNKNOWN) [Concomitant]

REACTIONS (2)
  - Fatigue [None]
  - Nausea [None]
